FAERS Safety Report 5071807-5 (Version None)
Quarter: 2006Q3

REPORT INFORMATION
  Report Type: 
  Country: None (occurrence: None)
  Receive Date: 20060801
  Receipt Date: 20060719
  Transmission Date: 20061208
  Serious: Yes (Hospitalization)
  Sender: FDA-Public Use
  Company Number: 1-14076029

PATIENT
  Age: 74 Year
  Sex: Female

DRUGS (5)
  1. CLONIDINE HCL [Suspect]
     Indication: HYPERTENSION
     Dosage: 0.2 MG TWICE DAILY, ORAL
     Route: 048
     Dates: start: 20060626, end: 20060628
  2. CLONIDINE HCL [Suspect]
     Indication: HYPERTENSION
     Dosage: 0.2 MG TWICE DAILY, ORAL
     Route: 048
     Dates: start: 20060630, end: 20060701
  3. CALCIUM GLUCONATE [Concomitant]
  4. PREMARIN [Concomitant]
  5. CENTRUM MULTIVITAMIN [Concomitant]

REACTIONS (5)
  - BLOOD PRESSURE INCREASED [None]
  - FEELING JITTERY [None]
  - HEADACHE [None]
  - NAUSEA [None]
  - THERAPEUTIC RESPONSE UNEXPECTED WITH DRUG SUBSTITUTION [None]
